FAERS Safety Report 11341654 (Version 1)
Quarter: 2015Q3

REPORT INFORMATION
  Report Type: Spontaneous
  Country: US (occurrence: None)
  Receive Date: 20150803
  Receipt Date: 20150803
  Transmission Date: 20151125
  Serious: Yes (Other)
  Sender: FDA-Public Use
  Company Number: None

PATIENT
  Age: 28 Year
  Sex: Female
  Weight: 58.06 kg

DRUGS (1)
  1. MIRENA [Suspect]
     Active Substance: LEVONORGESTREL
     Indication: CONTRACEPTION
     Dosage: ONE TIME INSERTION  VAGINAL
     Route: 067
     Dates: start: 20140901, end: 20150716

REACTIONS (1)
  - Alopecia [None]

NARRATIVE: CASE EVENT DATE: 20150101
